FAERS Safety Report 21850532 (Version 2)
Quarter: 2023Q1

REPORT INFORMATION
  Report Type: Spontaneous
  Country: US (occurrence: US)
  Receive Date: 20230111
  Receipt Date: 20230209
  Transmission Date: 20230418
  Serious: Yes (Other)
  Sender: FDA-Public Use
  Company Number: US-MLMSERVICE-20230102-4017202-1

PATIENT
  Age: 57 Year
  Sex: Male

DRUGS (3)
  1. LORAZEPAM [Suspect]
     Active Substance: LORAZEPAM
     Indication: Catatonia
     Route: 065
  2. LURASIDONE [Concomitant]
     Active Substance: LURASIDONE
     Indication: Bipolar I disorder
  3. LURASIDONE [Concomitant]
     Active Substance: LURASIDONE
     Dosage: INCREASED

REACTIONS (2)
  - Bradycardia [Recovered/Resolved]
  - Drug intolerance [Unknown]
